FAERS Safety Report 19279703 (Version 1)
Quarter: 2021Q2

REPORT INFORMATION
  Report Type: Report from Study
  Country: US (occurrence: US)
  Receive Date: 20210520
  Receipt Date: 20210520
  Transmission Date: 20210717
  Serious: No
  Sender: FDA-Public Use
  Company Number: NVSC2021US108442

PATIENT
  Age: 81 Year
  Sex: Female

DRUGS (1)
  1. ENTRESTO [Suspect]
     Active Substance: SACUBITRIL\VALSARTAN
     Indication: PRODUCT USED FOR UNKNOWN INDICATION
     Dosage: 1 DF, UNKNOWN (49/51 MG)
     Route: 065
     Dates: start: 202006

REACTIONS (3)
  - Cough [Not Recovered/Not Resolved]
  - Seasonal allergy [Unknown]
  - Visual impairment [Unknown]

NARRATIVE: CASE EVENT DATE: 202102
